FAERS Safety Report 4719751-4 (Version None)
Quarter: 2005Q3

REPORT INFORMATION
  Report Type: 
  Country: None (occurrence: None)
  Receive Date: 20050721
  Receipt Date: 20040715
  Transmission Date: 20060218
  Serious: No
  Sender: FDA-Public Use
  Company Number: US-GLAXOSMITHKLINE-A0518519A

PATIENT
  Age: 53 Year
  Sex: Female

DRUGS (3)
  1. AVANDIA [Suspect]
     Dosage: 2MG PER DAY
     Route: 048
     Dates: start: 20040615, end: 20040711
  2. TOPROL-XL [Concomitant]
  3. ARMOUR [Concomitant]

REACTIONS (2)
  - ARTHRALGIA [None]
  - TOOTHACHE [None]
